FAERS Safety Report 10149390 (Version 1)
Quarter: 2014Q2

REPORT INFORMATION
  Report Type: Spontaneous
  Country: US (occurrence: None)
  Receive Date: 20140430
  Receipt Date: 20140430
  Transmission Date: 20141212
  Serious: Yes (Hospitalization)
  Sender: FDA-Public Use
  Company Number: 2014P1003715

PATIENT
  Age: 85 Year
  Sex: Male

DRUGS (6)
  1. DIGOXIN [Suspect]
     Route: 048
  2. LASIX (FUROSEMIDE) [Suspect]
  3. METOLAZONE [Suspect]
  4. ENALAPRIL [Concomitant]
  5. COUMADIN [Concomitant]
  6. UNSPECIFIED ^POTASSIUM REPLETION^ [Concomitant]

REACTIONS (4)
  - Decreased appetite [None]
  - Cardiomegaly [None]
  - Pleural effusion [None]
  - Ventricular tachycardia [None]
